FAERS Safety Report 14013063 (Version 1)
Quarter: 2017Q3

REPORT INFORMATION
  Report Type: Spontaneous
  Country: CA (occurrence: CA)
  Receive Date: 20170926
  Receipt Date: 20170926
  Transmission Date: 20171128
  Serious: Yes (Other)
  Sender: FDA-Public Use
  Company Number: CA-PFIZER INC-2015379910

PATIENT
  Age: 52 Year
  Sex: Male

DRUGS (3)
  1. XELJANZ [Suspect]
     Active Substance: TOFACITINIB CITRATE
     Indication: RHEUMATOID ARTHRITIS
     Dosage: 5 MG, 2X/DAY
     Route: 048
     Dates: start: 20150710
  2. TYLENOL ARTHRITIS PAIN [Concomitant]
     Active Substance: ACETAMINOPHEN
     Dosage: UNK
  3. NAPROXEN. [Concomitant]
     Active Substance: NAPROXEN
     Dosage: UNK

REACTIONS (10)
  - Lethargy [Unknown]
  - Mental fatigue [Unknown]
  - Chronic obstructive pulmonary disease [Not Recovered/Not Resolved]
  - Laziness [Unknown]
  - Pain in extremity [Unknown]
  - Pain [Unknown]
  - White blood cell count decreased [Unknown]
  - Stress [Unknown]
  - Drug effect incomplete [Recovered/Resolved]
  - Drug dose omission [Unknown]
